FAERS Safety Report 13784321 (Version 1)
Quarter: 2017Q3

REPORT INFORMATION
  Report Type: Spontaneous
  Country: TT (occurrence: TT)
  Receive Date: 20170724
  Receipt Date: 20170724
  Transmission Date: 20171127
  Serious: Yes (Death)
  Sender: FDA-Public Use
  Company Number: PHHY2017TT106637

PATIENT
  Age: 72 Year
  Sex: Male

DRUGS (2)
  1. LEVOFLOXACIN SANDOZ [Suspect]
     Active Substance: LEVOFLOXACIN
     Indication: LOWER RESPIRATORY TRACT INFECTION
     Dosage: 500 MG, QD
     Route: 065
     Dates: start: 20160429
  2. PANTOPRAZOLE [Concomitant]
     Active Substance: PANTOPRAZOLE
     Indication: PRODUCT USED FOR UNKNOWN INDICATION
     Route: 065

REACTIONS (4)
  - Dizziness [Recovered/Resolved]
  - Death [Fatal]
  - Nausea [None]
  - Hallucination [Recovered/Resolved]

NARRATIVE: CASE EVENT DATE: 20160429
